FAERS Safety Report 8005027-9 (Version None)
Quarter: 2011Q4

REPORT INFORMATION
  Report Type: 
  Country: None (occurrence: None)
  Receive Date: 20111220
  Receipt Date: 20111209
  Transmission Date: 20120403
  Serious: Yes (Other)
  Sender: FDA-Public Use
  Company Number: 2011SP054274

PATIENT
  Age: 49 Year
  Sex: Female
  Weight: 48 kg

DRUGS (10)
  1. REBETOL [Suspect]
     Indication: HEPATITIS C
     Dosage: 600 MG;QD;PO
     Route: 048
     Dates: start: 20110404
  2. COREMINAL [Concomitant]
  3. RABEPRAZOLE SODIUM [Concomitant]
  4. RISUMIC [Concomitant]
  5. ZOLPIDEM [Concomitant]
  6. PEG-INTRON [Suspect]
     Indication: HEPATITIS C
     Dosage: 80 MCG;QW;SC
     Route: 058
     Dates: start: 20110404
  7. TANNALBIN [Concomitant]
  8. ADSORBIN (ALUMINUM SILICATE. NATURAL) [Concomitant]
  9. LOPERAMIDE HCL [Concomitant]
  10. MIYA BM [Concomitant]

REACTIONS (4)
  - MUSCULOSKELETAL STIFFNESS [None]
  - DYSGEUSIA [None]
  - HYPOAESTHESIA [None]
  - LOCALISED INFECTION [None]
